FAERS Safety Report 16257400 (Version 2)
Quarter: 2019Q2

REPORT INFORMATION
  Report Type: Report from Study
  Country: DE (occurrence: DE)
  Receive Date: 20190430
  Receipt Date: 20190607
  Transmission Date: 20190711
  Serious: Yes (Hospitalization)
  Sender: FDA-Public Use
  Company Number: DE-MYLANLABS-2019M1040669

PATIENT
  Age: 79 Year
  Sex: Male
  Weight: 80.7 kg

DRUGS (11)
  1. DUODOPA [Suspect]
     Active Substance: CARBIDOPA\LEVODOPA
     Dosage: 1 DOSAGE FORM, QD (ED 1.5 ML)
     Route: 050
     Dates: start: 20181016, end: 20181018
  2. DUODOPA [Suspect]
     Active Substance: CARBIDOPA\LEVODOPA
     Dosage: MD 10 ML
     Route: 050
     Dates: start: 20181018, end: 20181115
  3. DUODOPA [Suspect]
     Active Substance: CARBIDOPA\LEVODOPA
     Indication: PARKINSON^S DISEASE
     Dosage: UNK,ED 1.5 ML, MD 9 ML, CRD NOT REPORTED
     Route: 050
     Dates: start: 20180410, end: 20181115
  4. HUMALOG [Suspect]
     Active Substance: INSULIN LISPRO
     Indication: DIABETES MELLITUS
     Dosage: UNK, PRN,AS NEEDED
     Route: 048
     Dates: start: 2017
  5. DUODOPA [Suspect]
     Active Substance: CARBIDOPA\LEVODOPA
     Dosage: UNK,ED 1.5 ML, MD 10 ML, CRD 2.7 ML/H
     Route: 050
     Dates: start: 20181118, end: 20181128
  6. DUODOPA [Suspect]
     Active Substance: CARBIDOPA\LEVODOPA
     Dosage: UNK,ED 1.5 ML, MD 9 ML, CRD 2.7 ML/H
     Route: 050
     Dates: start: 20181115, end: 20181118
  7. ASPIRIN. [Suspect]
     Active Substance: ASPIRIN
     Indication: THROMBOSIS PROPHYLAXIS
     Dosage: 100 MILLIGRAM, QD
     Route: 048
     Dates: start: 2017
  8. MADOPAR [Concomitant]
     Active Substance: BENSERAZIDE HYDROCHLORIDE\LEVODOPA
     Indication: PARKINSON^S DISEASE
     Dosage: 200 MILLIGRAM, QD
     Route: 048
     Dates: start: 20180410, end: 20181116
  9. DUODOPA [Suspect]
     Active Substance: CARBIDOPA\LEVODOPA
     Dosage: 1 DOSAGE FORM, QD (ED 1.5 ML, MD 9 ML, CRD NOT REPORTED, MD 10ML)
     Route: 050
     Dates: start: 20180410, end: 20181016
  10. DUODOPA [Suspect]
     Active Substance: CARBIDOPA\LEVODOPA
     Dosage: UNK (CRD 3.3 ML/H)
     Route: 050
     Dates: start: 20181128
  11. AMLODIPINE [Suspect]
     Active Substance: AMLODIPINE BESYLATE
     Indication: HYPERTENSION
     Dosage: 2.5 MILLIGRAM, QD
     Route: 048
     Dates: start: 201808

REACTIONS (2)
  - Stoma site infection [Recovered/Resolved]
  - Arthralgia [Unknown]

NARRATIVE: CASE EVENT DATE: 20180615
